FAERS Safety Report 15707273 (Version 2)
Quarter: 2019Q1

REPORT INFORMATION
  Report Type: Spontaneous
  Country: CA (occurrence: CA)
  Receive Date: 20181210
  Receipt Date: 20190103
  Transmission Date: 20190417
  Serious: Yes (Other)
  Sender: FDA-Public Use
  Company Number: CA-CELLTRION INC.-2018CA024556

PATIENT

DRUGS (15)
  1. ESOMEPRAZOLE MAGNESIUM TRIHYDRATE [Concomitant]
     Active Substance: ESOMEPRAZOLE MAGNESIUM
     Dosage: UNK
  2. PIROXICAM. [Concomitant]
     Active Substance: PIROXICAM
  3. ERGOCALCIFEROL. [Concomitant]
     Active Substance: ERGOCALCIFEROL
  4. CELEBREX [Concomitant]
     Active Substance: CELECOXIB
  5. INFLIXIMAB PFIZER (UNKNOWN) [Suspect]
     Active Substance: INFLIXIMAB
     Indication: ANKYLOSING SPONDYLITIS
     Dosage: 500 MG, 1 EVERY 8 WEEKS
     Route: 042
  6. INFLIXIMAB PFIZER (UNKNOWN) [Suspect]
     Active Substance: INFLIXIMAB
     Dosage: 500 MG, 1 EVERY 8 WEEKS
     Route: 042
  7. HUMIRA [Suspect]
     Active Substance: ADALIMUMAB
     Indication: PRODUCT USED FOR UNKNOWN INDICATION
     Dosage: 40 MG, UNK;
     Route: 058
  8. VIOXX [Concomitant]
     Active Substance: ROFECOXIB
  9. CALCIUM GLUCONATE. [Concomitant]
     Active Substance: CALCIUM GLUCONATE
  10. METHOTREXATE. [Concomitant]
     Active Substance: METHOTREXATE
  11. INDOMETACIN [Concomitant]
     Active Substance: INDOMETHACIN
  12. ENBREL [Suspect]
     Active Substance: ETANERCEPT
     Indication: PRODUCT USED FOR UNKNOWN INDICATION
     Route: 065
  13. VITAMIN B12 [Concomitant]
     Active Substance: CYANOCOBALAMIN
  14. AMLODIPINE BESILATE [Concomitant]
     Active Substance: AMLODIPINE BESYLATE
  15. INFLIXIMAB PFIZER (UNKNOWN) [Suspect]
     Active Substance: INFLIXIMAB
     Dosage: 500 MG, 1 EVERY 8 WEEKS
     Route: 042

REACTIONS (17)
  - Benign abdominal neoplasm [Recovered/Resolved]
  - Blood pressure fluctuation [Recovered/Resolved]
  - Drug effect decreased [Recovered/Resolved]
  - Haematochezia [Recovered/Resolved]
  - Drug ineffective [Recovered/Resolved]
  - Arthralgia [Recovered/Resolved]
  - Back pain [Recovered/Resolved]
  - Enthesopathy [Recovered/Resolved]
  - Sacroiliitis [Recovered/Resolved]
  - Abdominal pain [Recovered/Resolved]
  - Chest expansion decreased [Recovered/Resolved]
  - Crohn^s disease [Recovered/Resolved]
  - Axial spondyloarthritis [Recovered/Resolved]
  - Osteopenia [Recovered/Resolved]
  - Fatigue [Recovered/Resolved]
  - Joint range of motion decreased [Recovered/Resolved]
  - Inflammatory bowel disease [Recovered/Resolved]
